FAERS Safety Report 8027351-6 (Version None)
Quarter: 2011Q4

REPORT INFORMATION
  Report Type: 
  Country: None (occurrence: None)
  Receive Date: 20111130
  Receipt Date: 20110802
  Transmission Date: 20120403
  Serious: Yes (Other)
  Sender: FDA-Public Use
  Company Number: US201108000693

PATIENT
  Age: 66 Year
  Sex: Female

DRUGS (3)
  1. BYETTA [Suspect]
     Indication: TYPE 2 DIABETES MELLITUS
     Dosage: SUBCUTANEOUS
  2. TRICOR [Concomitant]
  3. JANUMET [Concomitant]

REACTIONS (1)
  - PANCREATITIS [None]
